FAERS Safety Report 7309455-6 (Version None)
Quarter: 2011Q1

REPORT INFORMATION
  Report Type: 
  Country: None (occurrence: None)
  Receive Date: 20110223
  Receipt Date: 20110214
  Transmission Date: 20110831
  Serious: Yes (Other)
  Sender: FDA-Public Use
  Company Number: JP-ASTRAZENECA-2011SE07480

PATIENT

DRUGS (3)
  1. MEROPENEM HYDRATE [Suspect]
  2. FOSCARNET [Suspect]
     Route: 042
  3. UNKNOWN DRUG [Suspect]

REACTIONS (1)
  - RENAL SALT-WASTING SYNDROME [None]
